FAERS Safety Report 8293349-6 (Version None)
Quarter: 2012Q2

REPORT INFORMATION
  Report Type: 
  Country: None (occurrence: None)
  Receive Date: 20120417
  Receipt Date: 20111107
  Transmission Date: 20120825
  Serious: No
  Sender: FDA-Public Use
  Company Number: US-ASTRAZENECA-2010SE48630

PATIENT
  Age: 46 Year
  Sex: Male

DRUGS (3)
  1. PRILOSEC [Suspect]
     Route: 048
  2. PRILOSEC OTC [Suspect]
     Route: 048
  3. NEXIUM [Suspect]
     Route: 048
     Dates: start: 20100917

REACTIONS (4)
  - DYSPHAGIA [None]
  - DRUG EFFECT DECREASED [None]
  - EXPOSURE VIA FATHER [None]
  - DRUG DOSE OMISSION [None]
